FAERS Safety Report 5678460-8 (Version None)
Quarter: 2008Q1

REPORT INFORMATION
  Report Type: 
  Country: None (occurrence: None)
  Receive Date: 20080325
  Receipt Date: 20080319
  Transmission Date: 20080703
  Serious: Yes (Hospitalization)
  Sender: FDA-Public Use
  Company Number: US-BAYER-200817305NA

PATIENT
  Age: 23 Year
  Sex: Female

DRUGS (1)
  1. YAZ [Suspect]
     Route: 048

REACTIONS (1)
  - PULMONARY EMBOLISM [None]
